FAERS Safety Report 25178305 (Version 2)
Quarter: 2025Q2

REPORT INFORMATION
  Report Type: Spontaneous
  Country: JP (occurrence: JP)
  Receive Date: 20250409
  Receipt Date: 20250421
  Transmission Date: 20250717
  Serious: Yes (Other)
  Sender: MYLAN
  Company Number: JP-MYE-2025M1029077AA

PATIENT
  Age: 60 Year
  Sex: Female

DRUGS (1)
  1. TACROLIMUS [Suspect]
     Active Substance: TACROLIMUS
     Indication: Rheumatoid arthritis

REACTIONS (3)
  - Systemic lupus erythematosus [Unknown]
  - Product substitution issue [Unknown]
  - Off label use [Unknown]
